FAERS Safety Report 13875867 (Version 1)
Quarter: 2017Q3

REPORT INFORMATION
  Report Type: Spontaneous
  Country: US (occurrence: None)
  Receive Date: 20170814
  Receipt Date: 20170814
  Transmission Date: 20171127
  Serious: Yes (Hospitalization)
  Sender: FDA-Public Use
  Company Number: None

PATIENT
  Age: 59 Year
  Sex: Male

DRUGS (1)
  1. IODIXANOL. [Suspect]
     Active Substance: IODIXANOL
     Indication: SCAN WITH CONTRAST
     Route: 042
     Dates: start: 20170718, end: 20170718

REACTIONS (5)
  - Headache [None]
  - Acute kidney injury [None]
  - Diarrhoea [None]
  - Blood urea increased [None]
  - Blood creatinine increased [None]

NARRATIVE: CASE EVENT DATE: 20170718
